FAERS Safety Report 8093619-0 (Version None)
Quarter: 2012Q1

REPORT INFORMATION
  Report Type: 
  Country: None (occurrence: None)
  Receive Date: 20120129
  Receipt Date: 20110921
  Transmission Date: 20120608
  Serious: No
  Sender: FDA-Public Use
  Company Number: US-ABBOTT-11P-163-0856927-00

PATIENT
  Sex: Female

DRUGS (2)
  1. HUMIRA [Suspect]
     Indication: ENTERITIS
     Dosage: 4 PENS, DAY 1; 2 PENS, DAY 15
     Route: 058
     Dates: start: 20110917
  2. HUMIRA [Suspect]

REACTIONS (1)
  - FEELING HOT [None]
